FAERS Safety Report 4938796-2 (Version None)
Quarter: 2006Q1

REPORT INFORMATION
  Report Type: 
  Country: None (occurrence: None)
  Receive Date: 20060306
  Receipt Date: 20060216
  Transmission Date: 20060701
  Serious: Yes (Hospitalization)
  Sender: FDA-Public Use
  Company Number: 2006RL000051

PATIENT
  Age: 44 Year
  Sex: Female
  Weight: 78.0187 kg

DRUGS (7)
  1. OMACOR [Suspect]
     Indication: HYPERTRIGLYCERIDAEMIA
     Dosage: 2 GM; BID;
  2. AMICAR [Suspect]
     Dosage: 2 GM; BID;
     Dates: start: 20060202, end: 20060215
  3. SYNTHROID [Concomitant]
  4. PREMARIN [Concomitant]
  5. ALLEGRA [Concomitant]
  6. GEMFIBROZIL [Concomitant]
  7. KLONOPIN [Concomitant]

REACTIONS (7)
  - CHEST PAIN [None]
  - DIZZINESS [None]
  - DRUG DISPENSING ERROR [None]
  - DYSPNOEA [None]
  - HEADACHE [None]
  - MALAISE [None]
  - MEDICATION ERROR [None]
